FAERS Safety Report 6433994-3 (Version None)
Quarter: 2009Q4

REPORT INFORMATION
  Report Type: 
  Country: None (occurrence: None)
  Receive Date: 20091110
  Receipt Date: 20091027
  Transmission Date: 20100525
  Serious: Yes (Other)
  Sender: FDA-Public Use
  Company Number: PHEH2009US14639

PATIENT
  Sex: Male

DRUGS (8)
  1. METOPROLOL [Suspect]
     Dosage: 50 MG
     Route: 042
     Dates: start: 20091003
  2. METOPROLOL [Suspect]
     Dosage: UNK
     Route: 048
     Dates: start: 20091003
  3. DRONEDARONE HCL [Suspect]
     Indication: ATRIAL FIBRILLATION
     Dosage: UNK
     Dates: start: 20091003
  4. DRONEDARONE HCL [Suspect]
     Indication: CARDIOVERSION
  5. COUMADIN [Suspect]
  6. CARDIZEM [Suspect]
     Dosage: UNK
     Dates: start: 20091003
  7. HEPARIN [Concomitant]
  8. LISINOPRIL [Concomitant]

REACTIONS (3)
  - BRADYCARDIA [None]
  - HYPOTENSION [None]
  - INTERNATIONAL NORMALISED RATIO INCREASED [None]
